FAERS Safety Report 10511656 (Version 2)
Quarter: 2014Q4

REPORT INFORMATION
  Report Type: Spontaneous
  Country: US (occurrence: US)
  Receive Date: 20141010
  Receipt Date: 20141128
  Transmission Date: 20150528
  Serious: No
  Sender: FDA-Public Use
  Company Number: US-TEVA-514192USA

PATIENT
  Sex: Female
  Weight: 88.53 kg

DRUGS (1)
  1. SYNRIBO [Suspect]
     Active Substance: OMACETAXINE MEPESUCCINATE
     Indication: CHRONIC MYELOID LEUKAEMIA
     Dosage: 16 ML DAILY; 1 CYCLE
     Route: 065
     Dates: start: 201409, end: 201409

REACTIONS (4)
  - Pain [Recovered/Resolved]
  - Chills [Recovered/Resolved]
  - Laboratory test abnormal [Unknown]
  - Influenza like illness [Recovered/Resolved]

NARRATIVE: CASE EVENT DATE: 2014
